FAERS Safety Report 13598238 (Version 1)
Quarter: 2017Q2

REPORT INFORMATION
  Report Type: Spontaneous
  Country: BR (occurrence: BR)
  Receive Date: 20170531
  Receipt Date: 20170531
  Transmission Date: 20170830
  Serious: Yes (Death, Hospitalization, Other)
  Sender: FDA-Public Use
  Company Number: BR-BAXTER-2017BAX021746

PATIENT
  Age: 81 Year
  Sex: Female
  Weight: 53 kg

DRUGS (4)
  1. GENUXAL [Suspect]
     Active Substance: CYCLOPHOSPHAMIDE
     Indication: PRODUCT USED FOR UNKNOWN INDICATION
     Dosage: 1ST CYCLE
     Route: 042
     Dates: start: 20170213
  2. MABTHERA [Suspect]
     Active Substance: RITUXIMAB
     Indication: PRODUCT USED FOR UNKNOWN INDICATION
     Dosage: 1ST CYCLE
     Route: 042
     Dates: start: 20170213
  3. ADRIBLASTIN [Suspect]
     Active Substance: DOXORUBICIN HYDROCHLORIDE
     Indication: PRODUCT USED FOR UNKNOWN INDICATION
     Dosage: 1ST CYCLE
     Route: 042
     Dates: start: 20170213
  4. FAULDVINCRI [Suspect]
     Active Substance: VINCRISTINE SULFATE
     Indication: PRODUCT USED FOR UNKNOWN INDICATION
     Dosage: 1ST CYCLE
     Route: 042
     Dates: start: 20170213

REACTIONS (10)
  - Gastrointestinal haemorrhage [Fatal]
  - Anaemia [Fatal]
  - Thrombocytopenia [Fatal]
  - General physical health deterioration [Fatal]
  - Hyponatraemia [Fatal]
  - Fluid intake reduced [Unknown]
  - Diarrhoea [Fatal]
  - Febrile neutropenia [Fatal]
  - Somnolence [Fatal]
  - Escherichia infection [Unknown]

NARRATIVE: CASE EVENT DATE: 201702
